FAERS Safety Report 11594416 (Version 3)
Quarter: 2015Q4

REPORT INFORMATION
  Report Type: Spontaneous
  Country: US (occurrence: US)
  Receive Date: 20151005
  Receipt Date: 20151109
  Transmission Date: 20160304
  Serious: No
  Sender: FDA-Public Use
  Company Number: US-PFIZER INC-2015322815

PATIENT
  Age: 58 Year
  Sex: Female
  Weight: 47 kg

DRUGS (4)
  1. TEGRETOL [Concomitant]
     Active Substance: CARBAMAZEPINE
     Indication: SEIZURE
     Dosage: 1200 MG, DAILY (200 MG, 6X/DAY)
  2. DILANTIN [Suspect]
     Active Substance: PHENYTOIN
     Indication: SEIZURE
     Dosage: 100 MG, 3X/DAY
     Route: 048
     Dates: start: 1979
  3. DILANTIN [Suspect]
     Active Substance: PHENYTOIN
     Indication: SCAR
  4. ZARONTIN [Concomitant]
     Active Substance: ETHOSUXIMIDE
     Dosage: 12 MG, 2X/DAY

REACTIONS (2)
  - Drug ineffective [Unknown]
  - Hypoaesthesia [Unknown]
